FAERS Safety Report 4752665-2 (Version None)
Quarter: 2005Q3

REPORT INFORMATION
  Report Type: 
  Country: None (occurrence: None)
  Receive Date: 20050813
  Receipt Date: 20050809
  Transmission Date: 20060218
  Serious: Yes (Other)
  Sender: FDA-Public Use
  Company Number: SUS1-2005-00624

PATIENT
  Sex: Female

DRUGS (2)
  1. PENTASA [Suspect]
     Dosage: SEE IMAGE
     Route: 048
  2. PENTASA [Suspect]
     Dosage: SEE IMAGE
     Route: 048

REACTIONS (5)
  - CHILLS [None]
  - FATIGUE [None]
  - HYPERHIDROSIS [None]
  - PYREXIA [None]
  - RASH [None]
